FAERS Safety Report 4341612-3 (Version None)
Quarter: 2004Q2

REPORT INFORMATION
  Report Type: 
  Country: None (occurrence: None)
  Receive Date: 20040415
  Receipt Date: 20040329
  Transmission Date: 20050107
  Serious: Yes (Hospitalization, Other)
  Sender: FDA-Public Use
  Company Number: USA040363437

PATIENT
  Age: 31 Year
  Sex: Male

DRUGS (4)
  1. FORTEO [Suspect]
     Indication: BONE DENSITY DECREASED
     Dosage: 20 UG EVERY OTHER DAY
     Dates: start: 20031001
  2. FLUOXETINE HCL [Concomitant]
  3. TEGRETOL [Concomitant]
  4. KEPPRA [Concomitant]

REACTIONS (4)
  - BLOOD SODIUM DECREASED [None]
  - CONDITION AGGRAVATED [None]
  - CONVULSION [None]
  - HYPERHIDROSIS [None]
